FAERS Safety Report 21596015 (Version 1)
Quarter: 2022Q4

REPORT INFORMATION
  Report Type: Spontaneous
  Country: US (occurrence: US)
  Receive Date: 20221115
  Receipt Date: 20221115
  Transmission Date: 20230113
  Serious: No
  Sender: FDA-Public Use
  Company Number: US-drreddys-SPO/USA/22/0156835

PATIENT
  Age: 17 Year
  Sex: Female

DRUGS (1)
  1. ZENATANE [Suspect]
     Active Substance: ISOTRETINOIN
     Indication: Acne
     Dosage: RMA ISSUE DATE: 13 MARCH 2022:01:16:03 PM, 14 APRIL 2022: 07:21:21 PM, 11 MAY 2022: 03:40:40 PM, 10

REACTIONS (1)
  - Blood triglycerides increased [Unknown]
